FAERS Safety Report 7833635-4 (Version None)
Quarter: 2011Q4

REPORT INFORMATION
  Report Type: 
  Country: None (occurrence: None)
  Receive Date: 20111024
  Receipt Date: 20111017
  Transmission Date: 20120403
  Serious: Yes (Hospitalization)
  Sender: FDA-Public Use
  Company Number: FR-BRISTOL-MYERS SQUIBB COMPANY-16176679

PATIENT
  Age: 73 Year
  Sex: Male

DRUGS (4)
  1. AMARYL [Suspect]
     Indication: DIABETES MELLITUS
     Route: 048
     Dates: start: 20110601, end: 20110914
  2. GLUCOPHAGE [Suspect]
     Indication: DIABETES MELLITUS
     Route: 048
     Dates: start: 20110601, end: 20110914
  3. JANUVIA [Suspect]
     Indication: DIABETES MELLITUS
     Route: 048
     Dates: start: 20110601, end: 20110914
  4. MORPHINE SULFATE [Suspect]
     Route: 048
     Dates: start: 20110701, end: 20110914

REACTIONS (1)
  - RENAL FAILURE ACUTE [None]
